FAERS Safety Report 5067456-5 (Version None)
Quarter: 2006Q3

REPORT INFORMATION
  Report Type: 
  Country: None (occurrence: None)
  Receive Date: 20060731
  Receipt Date: 20060707
  Transmission Date: 20061208
  Serious: Yes (Other)
  Sender: FDA-Public Use
  Company Number: 200610836BWH

PATIENT
  Age: 81 Year
  Sex: Female
  Weight: 57.1532 kg

DRUGS (3)
  1. NEXAVAR [Suspect]
     Indication: RENAL CELL CARCINOMA STAGE UNSPECIFIED
     Dosage: 400 MG, BID, ORAL; SEE IMAGE
     Route: 048
     Dates: start: 20060202
  2. DIGITEK [Concomitant]
  3. VITAMINS [Concomitant]

REACTIONS (9)
  - BACK PAIN [None]
  - BONE NEOPLASM MALIGNANT [None]
  - BURNING SENSATION [None]
  - DECREASED APPETITE [None]
  - DISEASE PROGRESSION [None]
  - ERYTHEMA [None]
  - OEDEMA PERIPHERAL [None]
  - PAIN IN EXTREMITY [None]
  - RASH PRURITIC [None]
